FAERS Safety Report 10102025 (Version 2)
Quarter: 2014Q2

REPORT INFORMATION
  Report Type: Report from Study
  Country: BR (occurrence: BR)
  Receive Date: 20140424
  Receipt Date: 20140424
  Transmission Date: 20141212
  Serious: Yes (Death, Hospitalization)
  Sender: FDA-Public Use
  Company Number: BR-ROCHE-1365264

PATIENT
  Sex: Female

DRUGS (1)
  1. ACTEMRA [Suspect]
     Indication: RHEUMATOID ARTHRITIS
     Dosage: DATE OF MOST RECENT INFUSION: 04-FEB-2014
     Route: 042
     Dates: start: 20140107

REACTIONS (3)
  - Death [Fatal]
  - Gastrointestinal disorder [Not Recovered/Not Resolved]
  - Groin pain [Not Recovered/Not Resolved]
